FAERS Safety Report 4584534-5 (Version None)
Quarter: 2005Q1

REPORT INFORMATION
  Report Type: 
  Country: None (occurrence: None)
  Receive Date: 20050125
  Receipt Date: 20041001
  Transmission Date: 20050727
  Serious: No
  Sender: FDA-Public Use
  Company Number: USA040979048

PATIENT
  Age: 75 Year
  Sex: Male

DRUGS (18)
  1. FORTEO [Suspect]
     Indication: COMPRESSION FRACTURE
     Dates: start: 20040811
  2. FORTEO [Suspect]
     Indication: OSTEOPOROSIS
     Dates: start: 20040811
  3. CALCIUM GLUCONATE [Concomitant]
  4. CELEXA [Concomitant]
  5. LIPITOR [Concomitant]
  6. PROTONIX [Concomitant]
  7. KLONOPIN [Concomitant]
  8. ASPIRIN [Concomitant]
  9. VITAMIN E [Concomitant]
  10. FOLIC ACID [Concomitant]
  11. ACCUPRIL [Concomitant]
  12. VITAMIN B-12 [Concomitant]
  13. PREDNISONE [Concomitant]
  14. PARAFON FORTE [Concomitant]
  15. NEURONTIN (GABAPENTIN PFIZER) [Concomitant]
  16. DARVOCET-N 100 [Concomitant]
  17. MORPHINE [Concomitant]
  18. PERCOCET [Concomitant]

REACTIONS (4)
  - DIFFICULTY IN WALKING [None]
  - JOINT SWELLING [None]
  - MUSCULAR WEAKNESS [None]
  - PAIN IN EXTREMITY [None]
